FAERS Safety Report 9258037 (Version 1)
Quarter: 2013Q1

REPORT INFORMATION
  Report Type: Spontaneous
  Country: US (occurrence: None)
  Receive Date: 20121212
  Receipt Date: 20121212
  Transmission Date: 20140127
  Serious: No
  Sender: FDA-Public Use
  Company Number: 1207USA008240

PATIENT
  Age: 21 Year
  Sex: Male
  Weight: 90.7 kg

DRUGS (3)
  1. PEGINTRON [Suspect]
     Indication: HEPATITIS C
     Dosage: 150 MICROGRAM/0.5 ML, QW, SUBCUTANEOUS
     Route: 058
     Dates: start: 201205
  2. VICTRELIS [Suspect]
  3. REBETOL [Suspect]

REACTIONS (4)
  - Poor quality sleep [None]
  - Drug dose omission [None]
  - Product quality issue [None]
  - Underdose [None]
